FAERS Safety Report 9058498 (Version 1)
Quarter: 2013Q1

REPORT INFORMATION
  Report Type: Spontaneous
  Country: US (occurrence: None)
  Receive Date: 20130205
  Receipt Date: 20130205
  Transmission Date: 20140127
  Serious: Yes (Hospitalization)
  Sender: FDA-Public Use
  Company Number: None

PATIENT
  Age: 26 Year
  Sex: Female
  Weight: 58.97 kg

DRUGS (1)
  1. PROSTIN E2 [Suspect]
     Route: 067
     Dates: start: 20130201, end: 20130201

REACTIONS (7)
  - Malaise [None]
  - Back pain [None]
  - Abdominal pain [None]
  - Nervousness [None]
  - Premature delivery [None]
  - Wrong drug administered [None]
  - Medication error [None]
